FAERS Safety Report 17126996 (Version 6)
Quarter: 2020Q2

REPORT INFORMATION
  Report Type: Report from Study
  Country: None (occurrence: US)
  Receive Date: 20191209
  Receipt Date: 20200617
  Transmission Date: 20200713
  Serious: Yes (Hospitalization, Other)
  Sender: FDA-Public Use
  Company Number: US-ABBVIE-19K-163-3180672-00

PATIENT
  Age: 67 Year
  Sex: Female

DRUGS (5)
  1. HUMIRA [Suspect]
     Active Substance: ADALIMUMAB
     Indication: RHEUMATOID ARTHRITIS
     Dosage: CITRATE FREE
     Route: 058
     Dates: start: 2019
  2. HUMIRA [Suspect]
     Active Substance: ADALIMUMAB
     Indication: RHEUMATOID ARTHRITIS
     Route: 058
     Dates: start: 201812, end: 201906
  3. HUMIRA [Suspect]
     Active Substance: ADALIMUMAB
     Route: 058
     Dates: start: 201909, end: 2019
  4. FLUCONAZOLE. [Suspect]
     Active Substance: FLUCONAZOLE
     Indication: PRODUCT USED FOR UNKNOWN INDICATION
     Route: 065
  5. HUMIRA [Suspect]
     Active Substance: ADALIMUMAB
     Dosage: CITRATE FREE
     Route: 058
     Dates: start: 20200114, end: 202001

REACTIONS (35)
  - Gait inability [Unknown]
  - Skin exfoliation [Unknown]
  - Purulence [Not Recovered/Not Resolved]
  - Systemic mycosis [Recovering/Resolving]
  - Injection site pruritus [Not Recovered/Not Resolved]
  - Skin discolouration [Unknown]
  - Skin induration [Recovered/Resolved]
  - Anxiety [Not Recovered/Not Resolved]
  - Irritability [Not Recovered/Not Resolved]
  - Back pain [Not Recovered/Not Resolved]
  - Erythema [Not Recovered/Not Resolved]
  - Pyrexia [Unknown]
  - Injection site mass [Not Recovered/Not Resolved]
  - Bacterial infection [Unknown]
  - Pain [Not Recovered/Not Resolved]
  - Cardiac disorder [Unknown]
  - Spinal stenosis [Not Recovered/Not Resolved]
  - Acrochordon [Not Recovered/Not Resolved]
  - Hypertension [Not Recovered/Not Resolved]
  - Unevaluable event [Unknown]
  - Pneumonia [Recovered/Resolved]
  - Mental impairment [Unknown]
  - Pruritus allergic [Unknown]
  - Depressed mood [Not Recovered/Not Resolved]
  - Muscular weakness [Unknown]
  - Candida infection [Recovering/Resolving]
  - Kidney infection [Unknown]
  - Spinal fracture [Not Recovered/Not Resolved]
  - Spondylitis [Not Recovered/Not Resolved]
  - Rash [Recovered/Resolved]
  - Injection site erythema [Not Recovered/Not Resolved]
  - Dermal cyst [Not Recovered/Not Resolved]
  - Spinal disorder [Unknown]
  - Pruritus [Unknown]
  - Joint swelling [Unknown]

NARRATIVE: CASE EVENT DATE: 2019
